FAERS Safety Report 20000352 (Version 1)
Quarter: 2021Q4

REPORT INFORMATION
  Report Type: Spontaneous
  Country: CY (occurrence: CY)
  Receive Date: 20211027
  Receipt Date: 20211027
  Transmission Date: 20220303
  Serious: Yes (Other)
  Sender: FDA-Public Use
  Company Number: CY-BRISTOL-MYERS SQUIBB COMPANY-BMS-2021-111594

PATIENT
  Sex: Male

DRUGS (1)
  1. ELIQUIS [Suspect]
     Active Substance: APIXABAN
     Indication: Product used for unknown indication
     Route: 065

REACTIONS (2)
  - Arthropathy [Unknown]
  - Haemorrhage [Unknown]
